FAERS Safety Report 6543408-0 (Version None)
Quarter: 2010Q1

REPORT INFORMATION
  Report Type: 
  Country: None (occurrence: None)
  Receive Date: 20100107
  Receipt Date: 20090911
  Transmission Date: 20100710
  Serious: No
  Sender: FDA-Public Use
  Company Number: 2009-00607

PATIENT
  Age: 33 Year
  Sex: Male
  Weight: 95.2554 kg

DRUGS (3)
  1. COLD REMEDY GEL SWABS [Suspect]
     Dosage: 2-3X/DAY, 2 YEARS; 2 YEARS AGO-RECENT
  2. COLD REMEDY ORAL MIST [Suspect]
     Indication: NASOPHARYNGITIS
     Dosage: 2-3 DOSES
     Dates: start: 20080901, end: 20080901
  3. PRILOSEC [Concomitant]

REACTIONS (1)
  - ANOSMIA [None]
